FAERS Safety Report 5838456-X (Version None)
Quarter: 2008Q3

REPORT INFORMATION
  Report Type: 
  Country: None (occurrence: None)
  Receive Date: 20080806
  Receipt Date: 20080721
  Transmission Date: 20090109
  Serious: No
  Sender: FDA-Public Use
  Company Number: 2008S1012824

PATIENT
  Sex: Male

DRUGS (3)
  1. METFORMIN HYDROCHLORIDE [Suspect]
  2. GLIMEPIRIDE [Suspect]
  3. ACTOS [Suspect]

REACTIONS (1)
  - WEIGHT INCREASED [None]
